FAERS Safety Report 5867464-8 (Version None)
Quarter: 2008Q3

REPORT INFORMATION
  Report Type: 
  Country: None (occurrence: None)
  Receive Date: 20080902
  Receipt Date: 20080826
  Transmission Date: 20090109
  Serious: Yes (Hospitalization, Other)
  Sender: FDA-Public Use
  Company Number: DE-JNJFOC-20080805408

PATIENT
  Age: 48 Year
  Sex: Female
  Weight: 70 kg

DRUGS (3)
  1. PALIPERIDONE [Suspect]
     Indication: SCHIZOPHRENIA
     Route: 048
  2. VENLAFAXIN [Concomitant]
     Route: 048
  3. DOXEPIN HCL [Concomitant]
     Route: 048

REACTIONS (2)
  - HYPONATRAEMIA [None]
  - TONIC CONVULSION [None]
